FAERS Safety Report 5764175-4 (Version None)
Quarter: 2008Q2

REPORT INFORMATION
  Report Type: 
  Country: None (occurrence: None)
  Receive Date: 20080610
  Receipt Date: 20080604
  Transmission Date: 20081010
  Serious: Yes (Other)
  Sender: FDA-Public Use
  Company Number: AR-GILEAD-2007-0013781

PATIENT
  Sex: Male

DRUGS (4)
  1. TRUVADA [Suspect]
     Indication: HIV INFECTION
     Route: 048
     Dates: start: 20070621
  2. TRUVADA [Suspect]
     Route: 048
     Dates: start: 20071022
  3. LOPINAVIR AND RITONAVIR [Suspect]
     Indication: HIV INFECTION
     Route: 048
     Dates: start: 20070621
  4. LOPINAVIR AND RITONAVIR [Suspect]
     Route: 048
     Dates: start: 20071021

REACTIONS (2)
  - ATAXIA [None]
  - MEDULLOBLASTOMA [None]
